FAERS Safety Report 4972525-1 (Version None)
Quarter: 2006Q2

REPORT INFORMATION
  Report Type: 
  Country: None (occurrence: None)
  Receive Date: 20060413
  Receipt Date: 20050901
  Transmission Date: 20061013
  Serious: Yes (Hospitalization, Disabling)
  Sender: FDA-Public Use
  Company Number: US-MERCK-0509USA00512

PATIENT
  Age: 47 Year
  Sex: Female
  Weight: 54 kg

DRUGS (6)
  1. VIOXX [Suspect]
     Route: 048
     Dates: start: 20001011, end: 20030722
  2. VIOXX [Suspect]
     Route: 048
     Dates: start: 20030723, end: 20031112
  3. VIOXX [Suspect]
     Route: 048
     Dates: start: 20031113, end: 20040921
  4. VIOXX [Suspect]
     Route: 048
     Dates: start: 20021024
  5. CLIMARA [Concomitant]
     Indication: HORMONE REPLACEMENT THERAPY
     Route: 065
     Dates: start: 20010101
  6. ZOLOFT [Concomitant]
     Route: 065
     Dates: start: 20010101

REACTIONS (16)
  - ABDOMINAL DISCOMFORT [None]
  - ANXIETY [None]
  - CONVULSION [None]
  - DEPRESSION [None]
  - FATIGUE [None]
  - FIBROCYSTIC BREAST DISEASE [None]
  - GALLBLADDER DISORDER [None]
  - HEADACHE [None]
  - INSOMNIA [None]
  - INTRACRANIAL ANEURYSM [None]
  - MENOPAUSE [None]
  - NECK PAIN [None]
  - PANIC ATTACK [None]
  - PHOBIA [None]
  - SUBARACHNOID HAEMORRHAGE [None]
  - TENOSYNOVITIS STENOSANS [None]
